FAERS Safety Report 8739529 (Version 2)
Quarter: 2012Q4

REPORT INFORMATION
  Report Type: 
  Country: AU (occurrence: AU)
  Receive Date: 20120823
  Receipt Date: 20120905
  Transmission Date: 20130627
  Serious: Yes (Death, Hospitalization)
  Sender: FDA-Public Use
  Company Number: PHHY2012AU072195

PATIENT
  Age: 85 Year
  Sex: Female

DRUGS (2)
  1. SIMVASTATIN [Suspect]
     Dosage: 20 mg, daily
  2. VORICONAZOLE [Interacting]
     Dosage: 200 mg, BID
     Route: 048

REACTIONS (5)
  - Rhabdomyolysis [Fatal]
  - Respiratory failure [Fatal]
  - Respiratory muscle weakness [Fatal]
  - Asthenia [Fatal]
  - Drug interaction [Unknown]
